FAERS Safety Report 23333270 (Version 1)
Quarter: 2023Q4

REPORT INFORMATION
  Report Type: Spontaneous
  Country: JP (occurrence: JP)
  Receive Date: 20231222
  Receipt Date: 20231222
  Transmission Date: 20240110
  Serious: Yes (Other)
  Sender: FDA-Public Use
  Company Number: JP-ferring-EVA202301664FERRINGPH

PATIENT

DRUGS (2)
  1. DESMOPRESSIN ACETATE [Suspect]
     Active Substance: DESMOPRESSIN ACETATE
     Indication: Diabetes insipidus
     Dosage: 120 UG, 1 TIME DAILY (120 UG ONCE IN THE MORNING AND MINIRINMELT 60 UG ONCE IN THE EVENING)
     Route: 048
  2. DESMOPRESSIN ACETATE [Suspect]
     Active Substance: DESMOPRESSIN ACETATE
     Indication: Diabetes insipidus
     Dosage: 60 UG, 1 TIME DAILY (120 UG ONCE IN THE MORNING AND MINIRINMELT 60 UG ONCE IN THE EVENING)
     Route: 048

REACTIONS (2)
  - Gastric cancer [Unknown]
  - Therapy interrupted [Unknown]
